FAERS Safety Report 5740156-1 (Version None)
Quarter: 2008Q2

REPORT INFORMATION
  Report Type: 
  Country: None (occurrence: None)
  Receive Date: 20080516
  Receipt Date: 20080505
  Transmission Date: 20081010
  Serious: Yes (Death)
  Sender: FDA-Public Use
  Company Number: SE-ROCHE-562482

PATIENT
  Age: 36 Year
  Sex: Male

DRUGS (7)
  1. IKTORIVIL [Suspect]
     Indication: PAIN
     Route: 065
  2. CARISOPRODOL [Suspect]
     Indication: PAIN
     Dosage: DRUG REPORTED AS KARISOPRODOL.
     Route: 065
  3. TRAMADOL HCL [Suspect]
     Indication: PAIN
     Dosage: THE PATIENT WAS PRESCRIBED FOR THE LAST YEAR 11 TABLETS A 50 MG.
     Route: 065
  4. LYRICA [Concomitant]
  5. ALVEDON [Concomitant]
  6. XANOR [Concomitant]
  7. DEXOFEN [Concomitant]

REACTIONS (2)
  - DEPRESSION [None]
  - POISONING [None]
